FAERS Safety Report 6119349-X (Version None)
Quarter: 2009Q1

REPORT INFORMATION
  Report Type: 
  Country: None (occurrence: None)
  Receive Date: 20090316
  Receipt Date: 20090306
  Transmission Date: 20090719
  Serious: No
  Sender: FDA-Public Use
  Company Number: FR-AVENTIS-200810858FR

PATIENT
  Age: 22 Year
  Sex: Female
  Weight: 57 kg

DRUGS (4)
  1. ARAVA [Suspect]
     Route: 048
     Dates: start: 20060501, end: 20060501
  2. ARAVA [Suspect]
     Route: 048
     Dates: start: 20060501, end: 20060711
  3. ARAVA [Suspect]
     Route: 048
     Dates: start: 20060712, end: 20060901
  4. CORTANCYL [Concomitant]
     Route: 048

REACTIONS (2)
  - DRUG EXPOSURE DURING PREGNANCY [None]
  - INTENTIONAL DRUG MISUSE [None]
